FAERS Safety Report 11120401 (Version 7)
Quarter: 2015Q3

REPORT INFORMATION
  Report Type: Spontaneous
  Country: US (occurrence: US)
  Receive Date: 20150518
  Receipt Date: 20150922
  Transmission Date: 20151125
  Serious: Yes (Life-Threatening, Hospitalization)
  Sender: FDA-Public Use
  Company Number: US-ACTELION-A-NJ2015-114374

PATIENT
  Age: 69 Year
  Sex: Male

DRUGS (9)
  1. COUMADIN [Concomitant]
     Active Substance: WARFARIN SODIUM
  2. BUMETANIDE. [Concomitant]
     Active Substance: BUMETANIDE
     Dosage: 1 MG, QD
     Dates: start: 20120913, end: 20150402
  3. VENTAVIS [Suspect]
     Active Substance: ILOPROST
     Indication: PULMONARY HYPERTENSION
     Dosage: 5 MCG, 6-9X/DAY
     Route: 055
     Dates: start: 20110110
  4. OPSUMIT [Suspect]
     Active Substance: MACITENTAN
     Indication: PULMONARY HYPERTENSION
     Dosage: 10 MG, QD
     Route: 048
     Dates: start: 20150206
  5. OXYGEN. [Concomitant]
     Active Substance: OXYGEN
  6. DUONEB [Concomitant]
     Active Substance: ALBUTEROL SULFATE\IPRATROPIUM BROMIDE
     Dosage: 0.5-2.5 MG/3ML, 4 XDAY
     Dates: start: 20131202
  7. REVATIO [Concomitant]
     Active Substance: SILDENAFIL CITRATE
     Dosage: 20 MG, TID
     Route: 048
     Dates: start: 20100706
  8. ALDACTONE [Concomitant]
     Active Substance: SPIRONOLACTONE
     Dosage: 50 MG, QD
     Dates: start: 20100710
  9. ADVAIR UNSPEC [Concomitant]
     Dosage: 250/50, BID
     Dates: start: 20130402

REACTIONS (17)
  - Dyspnoea [Not Recovered/Not Resolved]
  - Asthenia [Unknown]
  - Chronic kidney disease [Recovering/Resolving]
  - Oxygen consumption increased [Not Recovered/Not Resolved]
  - Poor quality sleep [Unknown]
  - Oedema [Unknown]
  - Dizziness [Unknown]
  - Decreased activity [Unknown]
  - Respiratory failure [Not Recovered/Not Resolved]
  - Cardiac failure congestive [Recovering/Resolving]
  - Fatigue [Unknown]
  - Pneumothorax [Not Recovered/Not Resolved]
  - Pulmonary hypertension [Unknown]
  - Weight increased [Unknown]
  - Abasia [Unknown]
  - Abdominal distension [Unknown]
  - Malaise [Unknown]

NARRATIVE: CASE EVENT DATE: 20150223
